FAERS Safety Report 22269298 (Version 1)
Quarter: 2023Q2

REPORT INFORMATION
  Report Type: Spontaneous
  Country: US (occurrence: None)
  Receive Date: 20230427
  Receipt Date: 20230427
  Transmission Date: 20230722
  Serious: No
  Sender: FDA-Public Use
  Company Number: None

PATIENT
  Sex: Male

DRUGS (1)
  1. OCTREOTIDE [Suspect]
     Active Substance: OCTREOTIDE
     Indication: Crohn^s disease
     Dosage: 50MCG TWICE DAILY UNDER THE SKIN?
     Route: 058
     Dates: start: 202304

REACTIONS (1)
  - Drug ineffective [None]
